FAERS Safety Report 20882239 (Version 4)
Quarter: 2024Q1

REPORT INFORMATION
  Report Type: Spontaneous
  Country: JP (occurrence: JP)
  Receive Date: 20220527
  Receipt Date: 20240202
  Transmission Date: 20240410
  Serious: Yes (Other)
  Sender: FDA-Public Use
  Company Number: JP-TAKEDA-2022TJP049859

PATIENT
  Age: 8 Decade
  Sex: Female

DRUGS (4)
  1. CABOMETYX [Suspect]
     Active Substance: CABOZANTINIB S-MALATE
     Indication: Renal cell carcinoma
     Dosage: 40 MG, QD
     Route: 048
  2. CABOMETYX [Suspect]
     Active Substance: CABOZANTINIB S-MALATE
     Indication: Metastases to central nervous system
  3. NIVOLUMAB [Suspect]
     Active Substance: NIVOLUMAB
     Indication: Renal cell carcinoma
     Dosage: UNK
     Route: 065
  4. NIVOLUMAB [Suspect]
     Active Substance: NIVOLUMAB
     Dosage: UNK
     Route: 065

REACTIONS (3)
  - Loss of consciousness [Recovered/Resolved]
  - Intracranial tumour haemorrhage [Recovered/Resolved]
  - Seizure [Recovered/Resolved]
